FAERS Safety Report 9449339 (Version 2)
Quarter: 2013Q3

REPORT INFORMATION
  Report Type: Report from Study
  Country: CH (occurrence: CH)
  Receive Date: 20130808
  Receipt Date: 20130815
  Transmission Date: 20140515
  Serious: Yes (Death, Hospitalization, Other)
  Sender: FDA-Public Use
  Company Number: CH-009507513-1102USA00491

PATIENT
  Age: 68 Year
  Sex: Male
  Weight: 64 kg

DRUGS (6)
  1. SIMVASTATIN [Suspect]
     Indication: ACUTE CORONARY SYNDROME
     Dosage: 40 MG, QD
     Route: 048
     Dates: start: 20080116
  2. LISINOPRIL [Concomitant]
     Dosage: 20 MG DAILY
     Route: 048
     Dates: start: 20071230
  3. ASPIRIN [Concomitant]
     Dosage: 100 MG DAILY
     Route: 048
     Dates: start: 20080112
  4. LATANOPROST [Concomitant]
     Dosage: 1.5 MCG BOTH EACH EYE DAILY
     Route: 047
     Dates: start: 20080101
  5. ACEMETACIN [Concomitant]
     Dosage: 75 MG DAILY
     Route: 048
     Dates: start: 20090901
  6. OMEPRAZOLE [Concomitant]
     Dosage: 20 MG DAILY
     Route: 048
     Dates: start: 20080215

REACTIONS (2)
  - Hepatic cancer [Fatal]
  - Prostate cancer [Recovered/Resolved]
